FAERS Safety Report 17442084 (Version 1)
Quarter: 2020Q1

REPORT INFORMATION
  Report Type: Spontaneous
  Country: NL (occurrence: NL)
  Receive Date: 20200220
  Receipt Date: 20200220
  Transmission Date: 20200409
  Serious: Yes (Life-Threatening, Hospitalization)
  Sender: FDA-Public Use
  Company Number: NL-MYLANLABS-2020M1019168

PATIENT
  Age: 50 Year
  Sex: Female

DRUGS (1)
  1. NITROFURANTOIN. [Suspect]
     Active Substance: NITROFURANTOIN
     Indication: URINARY TRACT INFECTION
     Dosage: 50 MILLIGRAM, Q6H, CAPSULE, 50 MG (MILLIGRAM), 4 KEER PER DAG, 1
     Route: 065
     Dates: start: 20191129

REACTIONS (1)
  - Cholecystitis [Unknown]

NARRATIVE: CASE EVENT DATE: 20191203
